FAERS Safety Report 23336766 (Version 1)
Quarter: 2023Q4

REPORT INFORMATION
  Report Type: Spontaneous
  Country: US (occurrence: US)
  Receive Date: 20231226
  Receipt Date: 20231226
  Transmission Date: 20240109
  Serious: Yes (Other)
  Sender: FDA-Public Use
  Company Number: US-GRAVITIPHARMA-GRA-2312-US-LIT-0054

PATIENT
  Age: 52 Year
  Sex: Male

DRUGS (12)
  1. FUROSEMIDE [Suspect]
     Active Substance: FUROSEMIDE
     Indication: Cardiogenic shock
     Route: 042
  2. FUROSEMIDE [Suspect]
     Active Substance: FUROSEMIDE
     Indication: Cardiac failure acute
  3. FUROSEMIDE [Suspect]
     Active Substance: FUROSEMIDE
     Indication: Polyuria
  4. DOBUTAMINE [Suspect]
     Active Substance: DOBUTAMINE HYDROCHLORIDE
     Indication: Cardiogenic shock
     Route: 042
  5. DOBUTAMINE [Suspect]
     Active Substance: DOBUTAMINE HYDROCHLORIDE
     Indication: Cardiac failure acute
  6. HEPARIN [Concomitant]
     Active Substance: HEPARIN SODIUM
  7. HEPARIN [Concomitant]
     Active Substance: HEPARIN SODIUM
  8. HEPARIN [Concomitant]
     Active Substance: HEPARIN SODIUM
     Indication: Embolism
  9. BIVALIRUDIN [Concomitant]
     Active Substance: BIVALIRUDIN
  10. BIVALIRUDIN [Concomitant]
     Active Substance: BIVALIRUDIN
  11. BIVALIRUDIN [Concomitant]
     Active Substance: BIVALIRUDIN
     Indication: Embolism
  12. WARFARIN [Concomitant]
     Active Substance: WARFARIN
     Indication: Plasmapheresis

REACTIONS (1)
  - Drug ineffective [Unknown]
